FAERS Safety Report 11722295 (Version 1)
Quarter: 2015Q4

REPORT INFORMATION
  Report Type: Spontaneous
  Country: US (occurrence: None)
  Receive Date: 20151110
  Receipt Date: 20151110
  Transmission Date: 20160304
  Serious: No
  Sender: FDA-Public Use
  Company Number: None

PATIENT
  Age: 28 Year
  Sex: Female
  Weight: 58.97 kg

DRUGS (7)
  1. LEVOCETIRIZINE 5MG GLENMARK [Suspect]
     Active Substance: LEVOCETIRIZINE
     Indication: MULTIPLE ALLERGIES
     Dosage: 2-3 YEARS?1 TABLET, ONCE DAILY, TAKEN BY MOUTH
     Route: 048
  2. LEVONORGESTREL AND ETHINYL ESTRADIOL [Concomitant]
     Active Substance: ETHINYL ESTRADIOL\LEVONORGESTREL
  3. WOMEN^S GUMMY VITAMINS [Concomitant]
  4. NATURE MADE TIMED RELEASE B12 [Concomitant]
  5. SCHIFF MEGARED OMEGA 3 KRILL OIL SOFTGEL [Concomitant]
  6. VITAFUSION MULTIVITES GUMMY VITAMINS [Concomitant]
  7. NATURAL VITALITY NATURAL CALM POWDERED MAGNESIUM SUPPLEMENT [Concomitant]

REACTIONS (4)
  - Pruritus generalised [None]
  - Insomnia [None]
  - Product label issue [None]
  - Nausea [None]

NARRATIVE: CASE EVENT DATE: 20151108
